FAERS Safety Report 6818190-X (Version None)
Quarter: 2010Q3

REPORT INFORMATION
  Report Type: 
  Country: None (occurrence: None)
  Receive Date: 20100706
  Receipt Date: 20070606
  Transmission Date: 20110219
  Serious: No
  Sender: FDA-Public Use
  Company Number: US-PFIZER INC-2007046805

PATIENT
  Sex: Male
  Weight: 7.5 kg

DRUGS (1)
  1. ZITHROMAX [Suspect]
     Indication: EAR INFECTION
     Dates: start: 20070529, end: 20070603

REACTIONS (1)
  - TONGUE DISCOLOURATION [None]
